FAERS Safety Report 6678624-0 (Version None)
Quarter: 2010Q2

REPORT INFORMATION
  Report Type: 
  Country: None (occurrence: None)
  Receive Date: 20100412
  Receipt Date: 20100412
  Transmission Date: 20101027
  Serious: No
  Sender: FDA-Public Use
  Company Number: None

PATIENT
  Age: 65 Year
  Sex: Female
  Weight: 80.7 kg

DRUGS (8)
  1. MORPHINE [Suspect]
     Indication: PAIN
     Dosage: 0/2/10 PCA
     Dates: start: 20091208, end: 20091209
  2. PERCOCET [Suspect]
     Indication: PAIN
     Dosage: 5/325 MG PO Q 4 PRN
     Route: 048
     Dates: start: 20091207
  3. ASPIRIN [Concomitant]
  4. DOCUSATE [Concomitant]
  5. HYDRALAZINE HCL [Concomitant]
  6. INSULIN [Concomitant]
  7. LEVOFLOXACIN [Concomitant]
  8. VANCOMYCIN HCL [Concomitant]

REACTIONS (4)
  - LETHARGY [None]
  - MENTAL STATUS CHANGES [None]
  - PO2 DECREASED [None]
  - UNRESPONSIVE TO STIMULI [None]
